FAERS Safety Report 5285302-1 (Version None)
Quarter: 2007Q2

REPORT INFORMATION
  Report Type: 
  Country: None (occurrence: None)
  Receive Date: 20070403
  Receipt Date: 20070326
  Transmission Date: 20071010
  Serious: Yes (Life-Threatening, Hospitalization)
  Sender: FDA-Public Use
  Company Number: CA-BOEHRINGER INGELHEIM GMBH, GERMANY-2007-CN-00243CN

PATIENT
  Sex: Male
  Weight: 67.5 kg

DRUGS (8)
  1. BUSCOPAN AMPOULES [Suspect]
     Route: 048
     Dates: start: 20070123, end: 20070124
  2. IRINOTECAN HCL [Suspect]
     Indication: OESOPHAGEAL CARCINOMA
     Route: 042
     Dates: start: 20070109
  3. CISPLATIN [Suspect]
     Route: 042
     Dates: start: 20070109
  4. LOPERAMIDE HYDROCHLORIDE [Suspect]
     Route: 048
     Dates: start: 20070123, end: 20070124
  5. TYLENOL W/ CODEINE NO. 3 [Suspect]
     Route: 048
     Dates: start: 20070123, end: 20070124
  6. KYTRIL [Concomitant]
     Route: 048
     Dates: start: 20070110
  7. DECADRON [Concomitant]
     Route: 048
     Dates: start: 20070110
  8. ALTACE [Concomitant]
     Route: 048

REACTIONS (9)
  - ABDOMINAL PAIN UPPER [None]
  - ATRIAL FIBRILLATION [None]
  - CHRONIC OBSTRUCTIVE PULMONARY DISEASE [None]
  - CONSTIPATION [None]
  - DIARRHOEA [None]
  - FEBRILE NEUTROPENIA [None]
  - ILEUS [None]
  - TREMOR [None]
  - VENTRICULAR TACHYCARDIA [None]
